FAERS Safety Report 24146502 (Version 1)
Quarter: 2024Q3

REPORT INFORMATION
  Report Type: Other
  Country: IT (occurrence: IT)
  Receive Date: 20240729
  Receipt Date: 20240729
  Transmission Date: 20241017
  Serious: Yes (Other)
  Sender: APPCO PHARMA
  Company Number: IT-Appco Pharma LLC-2159706

PATIENT
  Age: 19 Year
  Sex: Female

DRUGS (3)
  1. VENLAFAXINE [Suspect]
     Active Substance: VENLAFAXINE HYDROCHLORIDE
     Indication: Product used for unknown indication
     Route: 065
  2. ARIPIPRAZOLE LAUROXIL [Concomitant]
     Active Substance: ARIPIPRAZOLE LAUROXIL
     Route: 065
  3. LITHIUM CARBONATE [Concomitant]
     Active Substance: LITHIUM CARBONATE
     Route: 065

REACTIONS (1)
  - Drug ineffective [Unknown]
